FAERS Safety Report 8991444 (Version 3)
Quarter: 2013Q2

REPORT INFORMATION
  Report Type: Spontaneous
  Country: JP (occurrence: JP)
  Receive Date: 20121231
  Receipt Date: 20130403
  Transmission Date: 20140414
  Serious: Yes (Hospitalization, Other)
  Sender: FDA-Public Use
  Company Number: JP-ROCHE-1174242

PATIENT
  Age: 78 Year
  Sex: Female

DRUGS (1)
  1. OMALIZUMAB [Suspect]
     Indication: ASTHMA
     Route: 058
     Dates: start: 20110223, end: 20120721

REACTIONS (4)
  - Interstitial lung disease [Recovering/Resolving]
  - Asthma [Unknown]
  - Concomitant disease aggravated [Unknown]
  - Bronchoalveolar lavage abnormal [Unknown]
